FAERS Safety Report 4541332-6 (Version None)
Quarter: 2004Q4

REPORT INFORMATION
  Report Type: 
  Country: None (occurrence: None)
  Receive Date: 20041227
  Receipt Date: 20041118
  Transmission Date: 20050328
  Serious: Yes (Hospitalization)
  Sender: FDA-Public Use
  Company Number: ACO_0028_2004

PATIENT
  Age: 48 Year
  Sex: Female

DRUGS (5)
  1. TIZANIDINE [Suspect]
     Indication: HYPERTONIA
     Dosage: 2 MG ONCE PO
     Route: 048
  2. LABETALOL [Concomitant]
  3. AMLODIPINE [Concomitant]
  4. NIMODIPINE [Concomitant]
  5. LISINOPRIL [Concomitant]

REACTIONS (2)
  - BLOOD PRESSURE DECREASED [None]
  - DEPRESSED LEVEL OF CONSCIOUSNESS [None]
